FAERS Safety Report 13032894 (Version 1)
Quarter: 2016Q4

REPORT INFORMATION
  Report Type: Spontaneous
  Country: US (occurrence: US)
  Receive Date: 20161215
  Receipt Date: 20161215
  Transmission Date: 20170207
  Serious: Yes (Other)
  Sender: FDA-Public Use
  Company Number: US-BION-20160440

PATIENT
  Age: 36 Year
  Sex: Female
  Weight: 83.91 kg

DRUGS (3)
  1. BABY ASPIRIN [Concomitant]
     Active Substance: ASPIRIN
  2. PROGESTERONE CAPSULES 200 MG [Suspect]
     Active Substance: PROGESTERONE
     Dosage: 1 DF VAGINALLY EVERY NIGHT 9USED ONLY ONCE)
     Route: 067
  3. PRENATAL VITAMINS [Concomitant]
     Active Substance: VITAMINS

REACTIONS (6)
  - Product substitution issue [None]
  - Contraindicated product administered [Unknown]
  - Drug ineffective for unapproved indication [Unknown]
  - Incorrect route of drug administration [Unknown]
  - Exposure during pregnancy [None]
  - Vaginal haemorrhage [Recovered/Resolved]
